FAERS Safety Report 9306284 (Version 2)
Quarter: 2013Q2

REPORT INFORMATION
  Report Type: Spontaneous
  Country: US (occurrence: None)
  Receive Date: 20130429
  Receipt Date: 20130513
  Transmission Date: 20140414
  Serious: Yes (Other)
  Sender: FDA-Public Use
  Company Number: 2013035553

PATIENT
  Age: 15 Year
  Sex: Female

DRUGS (1)
  1. BERINERT [Suspect]
     Indication: HEREDITARY ANGIOEDEMA
     Dosage: PRN INTRAVENOUS (NOT OTHERWISE SPECIFIED))
     Route: 042
     Dates: start: 20130108

REACTIONS (2)
  - Laryngeal oedema [None]
  - Cough [None]
